FAERS Safety Report 20813374 (Version 5)
Quarter: 2022Q3

REPORT INFORMATION
  Report Type: Spontaneous
  Country: US (occurrence: US)
  Receive Date: 20220511
  Receipt Date: 20220811
  Transmission Date: 20221027
  Serious: Yes (Other)
  Sender: FDA-Public Use
  Company Number: US-CELGENE-USA-20220303755

PATIENT
  Age: 78 Year
  Sex: Female

DRUGS (5)
  1. REVLIMID [Suspect]
     Active Substance: LENALIDOMIDE
     Indication: Plasma cell myeloma
     Dosage: 25 MILLIGRAM, 21 IN 28 DAYS
     Route: 048
     Dates: start: 20220107
  2. REVLIMID [Suspect]
     Active Substance: LENALIDOMIDE
     Indication: Plasma cell leukaemia
     Dosage: FREQUENCY : TAKE 1 CAPSULE BY MOUTH EVERY DAY ON DAYS 1-21 EVERY 28 DAYS
     Route: 048
  3. REVLIMID [Suspect]
     Active Substance: LENALIDOMIDE
     Dosage: 1-21/28
     Route: 048
     Dates: start: 20220427
  4. TRAMADOL [Suspect]
     Active Substance: TRAMADOL
     Indication: Cancer pain
     Dosage: Q4 PRN
     Route: 048
     Dates: start: 20220427
  5. GABAPENTIN [Suspect]
     Active Substance: GABAPENTIN
     Indication: Cancer pain
     Dosage: TID
     Route: 048
     Dates: start: 20211223

REACTIONS (10)
  - Neuropathy peripheral [Not Recovered/Not Resolved]
  - Confusional state [Recovered/Resolved]
  - Extra dose administered [Unknown]
  - Chest pain [Not Recovered/Not Resolved]
  - Constipation [Not Recovered/Not Resolved]
  - Dysgeusia [Not Recovered/Not Resolved]
  - Decreased appetite [Not Recovered/Not Resolved]
  - Dyspnoea exertional [Unknown]
  - Diarrhoea [Unknown]
  - Fatigue [Unknown]

NARRATIVE: CASE EVENT DATE: 20220407
